FAERS Safety Report 5017044-1 (Version None)
Quarter: 2006Q2

REPORT INFORMATION
  Report Type: 
  Country: None (occurrence: None)
  Receive Date: 20060602
  Receipt Date: 20051206
  Transmission Date: 20061013
  Serious: Yes (Other)
  Sender: FDA-Public Use
  Company Number: US-AMGEN-US160602

PATIENT
  Age: 73 Year
  Sex: Male

DRUGS (2)
  1. PROCRIT [Suspect]
     Indication: RENAL FAILURE CHRONIC
     Dates: start: 20051010
  2. FLUDARABINE [Concomitant]
     Dates: start: 20051001

REACTIONS (2)
  - APLASIA PURE RED CELL [None]
  - LUNG NEOPLASM MALIGNANT [None]
